FAERS Safety Report 10753106 (Version 3)
Quarter: 2015Q2

REPORT INFORMATION
  Report Type: Spontaneous
  Country: US (occurrence: US)
  Receive Date: 20150130
  Receipt Date: 20150414
  Transmission Date: 20150821
  Serious: No
  Sender: FDA-Public Use
  Company Number: US-PFIZER INC-2015032697

PATIENT
  Age: 71 Year
  Sex: Female

DRUGS (22)
  1. AMLODIPINE BESILATE [Concomitant]
     Active Substance: AMLODIPINE BESYLATE
     Dosage: 10 MG ONCE A DAY IN AM
  2. AMARYL [Concomitant]
     Active Substance: GLIMEPIRIDE
     Dosage: 4MG, TWICE DAILY (AM/PM)
  3. LIBRAX [Concomitant]
     Active Substance: CHLORDIAZEPOXIDE HYDROCHLORIDE\CLIDINIUM BROMIDE
     Dosage: UNK, AS NEEDED
  4. LANTUS [Concomitant]
     Active Substance: INSULIN GLARGINE
     Dosage: UNK, ONCE DAILY
  5. CALTRATE 600+D [Concomitant]
     Dosage: UNK, TWICE DAILY
  6. ZYRTEC [Concomitant]
     Active Substance: CETIRIZINE HYDROCHLORIDE
     Dosage: 10 MG, AS NEEDED
  7. ADVIL PM [Suspect]
     Active Substance: DIPHENHYDRAMINE CITRATE\IBUPROFEN
     Indication: PAIN
     Dosage: 1 TABLET DAILY AT NIGHT
     Dates: end: 20150122
  8. ZANTAC [Concomitant]
     Active Substance: RANITIDINE HYDROCHLORIDE
     Dosage: UNK, ONCE DAILY
  9. ACIPHEX [Concomitant]
     Active Substance: RABEPRAZOLE SODIUM
     Dosage: 20 MG, ONCE DAILY
  10. Q10 [Concomitant]
     Dosage: 120 MG, ONCE DAILY
  11. MOVE FREE ULTRA [Concomitant]
     Dosage: UNK, TWICE DAILY
  12. LISINOPRIL. [Concomitant]
     Active Substance: LISINOPRIL
     Dosage: 20/25 MG ONCE A DAY IN AM
  13. POTASSIUM CHLORIDE. [Concomitant]
     Active Substance: POTASSIUM CHLORIDE
     Dosage: 20 MEQ, ONCE DAILY
  14. VITAMIN D3 [Concomitant]
     Active Substance: CHOLECALCIFEROL
     Dosage: 2000 IU, TWICE DAILY
  15. CHLORDIAZEPOXIDE/CLIDINIUM [Concomitant]
     Dosage: UNK, TWICE DAILY (AM/PM)
  16. ADVIL PM [Suspect]
     Active Substance: DIPHENHYDRAMINE CITRATE\IBUPROFEN
     Indication: INSOMNIA
  17. KOMBIGLYZE XR [Concomitant]
     Active Substance: METFORMIN HYDROCHLORIDE\SAXAGLIPTIN HYDROCHLORIDE
     Dosage: 2.5 MG/1000MG, TWICE DAILY (AM/PM)
  18. ADVAIR HFA [Concomitant]
     Active Substance: FLUTICASONE PROPIONATE\SALMETEROL XINAFOATE
     Dosage: 100/50 MCG 2 PUFFS DAILY (AM AND PM)
  19. LUTEIN [Concomitant]
     Active Substance: LUTEIN
     Dosage: 40 MG, ONCE DAILY
  20. CLONIDINE. [Concomitant]
     Active Substance: CLONIDINE
     Dosage: 0.1 MG ONCE DAILY IN PM
  21. PRAVASTATIN [Concomitant]
     Active Substance: PRAVASTATIN\PRAVASTATIN SODIUM
     Dosage: 20 MG, HALF DAILY
  22. MULTIDOPHILUS [Concomitant]
     Dosage: 360 MG, ONCE DAILY

REACTIONS (2)
  - Expired product administered [Unknown]
  - Blood pressure increased [Not Recovered/Not Resolved]

NARRATIVE: CASE EVENT DATE: 20140123
